FAERS Safety Report 9986395 (Version 1)
Quarter: 2014Q1

REPORT INFORMATION
  Report Type: Report from Study
  Country: US (occurrence: US)
  Receive Date: 20140307
  Receipt Date: 20140307
  Transmission Date: 20141002
  Serious: No
  Sender: FDA-Public Use
  Company Number: US-ABBVIE-13P-163-1085515-00

PATIENT
  Age: 45 Year
  Sex: Female

DRUGS (14)
  1. HUMIRA [Suspect]
     Indication: PSORIASIS
     Route: 058
     Dates: start: 20130412, end: 20130412
  2. HUMIRA [Suspect]
     Route: 058
     Dates: start: 20130419
  3. TOPIRAMATE [Concomitant]
     Indication: MIGRAINE PROPHYLAXIS
  4. DIAZEPAM [Concomitant]
     Indication: PAIN MANAGEMENT
     Dosage: 3 TIMES DAILY
  5. SOTALOL [Concomitant]
     Indication: VENTRICULAR TACHYCARDIA
  6. FLEXERIL [Concomitant]
     Indication: PSORIATIC ARTHROPATHY
  7. GABAPENTIN [Concomitant]
     Indication: PAIN MANAGEMENT
     Dosage: 1 IN THE MORNING AND 3 AT BEDTIME
  8. OXYCODONE [Concomitant]
     Indication: PAIN MANAGEMENT
     Dosage: 4 TIMES DAILY
  9. RANITIDINE [Concomitant]
     Indication: GASTROOESOPHAGEAL REFLUX DISEASE
  10. LORATADINE [Concomitant]
     Indication: HYPERSENSITIVITY
  11. FLOVENT [Concomitant]
     Indication: ASTHMA
  12. ATROVENT [Concomitant]
     Indication: ASTHMA
  13. LIDODERM [Concomitant]
     Indication: PAIN MANAGEMENT
  14. VIIBRYD [Concomitant]
     Indication: DEPRESSION

REACTIONS (4)
  - Drug ineffective [Not Recovered/Not Resolved]
  - Arthralgia [Not Recovered/Not Resolved]
  - Arthritis [Not Recovered/Not Resolved]
  - Back pain [Not Recovered/Not Resolved]
